FAERS Safety Report 7862832-7 (Version None)
Quarter: 2011Q4

REPORT INFORMATION
  Report Type: 
  Country: None (occurrence: None)
  Receive Date: 20111027
  Receipt Date: 20111018
  Transmission Date: 20120403
  Serious: Yes (Hospitalization, Other)
  Sender: FDA-Public Use
  Company Number: US-ASTRAZENECA-2011SE27249

PATIENT
  Age: 55 Year
  Sex: Male
  Weight: 72.6 kg

DRUGS (15)
  1. SEROQUEL [Suspect]
     Indication: CONVULSION
     Route: 048
     Dates: end: 20110101
  2. SEROQUEL [Suspect]
     Route: 048
     Dates: end: 20110101
  3. SEROQUEL [Suspect]
     Route: 048
     Dates: start: 20110101
  4. SEROQUEL [Suspect]
     Route: 048
     Dates: start: 20110101
  5. SEROQUEL [Suspect]
     Route: 048
  6. DEPAKOTE [Concomitant]
  7. SEROQUEL [Suspect]
     Indication: BRAIN INJURY
     Route: 048
     Dates: end: 20110101
  8. SEROQUEL [Suspect]
     Indication: SLEEP DISORDER
     Route: 048
     Dates: end: 20110101
  9. SEROQUEL [Suspect]
     Route: 048
  10. SEROQUEL [Suspect]
     Route: 048
     Dates: end: 20110101
  11. SEROQUEL [Suspect]
     Route: 048
     Dates: end: 20110101
  12. TYLENOL-500 [Concomitant]
     Dosage: UNKNOWN DOSE AS REQUIRED
  13. ALKASELTZER [Concomitant]
     Dosage: UNKNOWN DOSE AS REQUIRED
  14. SEROQUEL [Suspect]
     Route: 048
  15. SEROQUEL [Suspect]
     Route: 048
     Dates: start: 20110101

REACTIONS (15)
  - CONVULSION [None]
  - RESPIRATORY TRACT CONGESTION [None]
  - MALAISE [None]
  - INFLUENZA LIKE ILLNESS [None]
  - SOMNOLENCE [None]
  - DRUG DOSE OMISSION [None]
  - DRUG WITHDRAWAL SYNDROME [None]
  - AMNESIA [None]
  - OFF LABEL USE [None]
  - RIB FRACTURE [None]
  - DRUG INEFFECTIVE [None]
  - ROAD TRAFFIC ACCIDENT [None]
  - DEPRESSED MOOD [None]
  - WRONG TECHNIQUE IN DRUG USAGE PROCESS [None]
  - FALL [None]
